FAERS Safety Report 8403659 (Version 2)
Quarter: 2019Q3

REPORT INFORMATION
  Report Type: Spontaneous
  Country: DE (occurrence: DE)
  Receive Date: 20120213
  Receipt Date: 20190702
  Transmission Date: 20191005
  Serious: Yes (Congenital Anomaly)
  Sender: FDA-Public Use
  Company Number: PHHY2012DE011583

PATIENT
  Age: 0 Year
  Sex: Male
  Weight: 3.31 kg

DRUGS (3)
  1. TRILEPTAL [Suspect]
     Active Substance: OXCARBAZEPINE
     Indication: EPILEPSY
     Dosage: MATERNAL DOSE:1500 MG/DAY (600-0-900)
     Route: 064
     Dates: start: 20101231, end: 20110926
  2. CEFUROXIME. [Concomitant]
     Active Substance: CEFUROXIME
     Indication: FOETAL EXPOSURE DURING PREGNANCY
     Dosage: MATERNAL DOSE: UNKNOWN
     Route: 064
  3. KEPPRA [Suspect]
     Active Substance: LEVETIRACETAM
     Indication: EPILEPSY
     Dosage: MATERNAL DOSE: 2000 MG, QD
     Route: 064
     Dates: start: 20101231, end: 20110926

REACTIONS (3)
  - Talipes [Unknown]
  - Atrial septal defect [Unknown]
  - Maternal exposure during pregnancy [Unknown]

NARRATIVE: CASE EVENT DATE: 2011
